FAERS Safety Report 10586114 (Version 2)
Quarter: 2015Q1

REPORT INFORMATION
  Report Type: Spontaneous
  Country: NO (occurrence: NO)
  Receive Date: 20141115
  Receipt Date: 20141115
  Transmission Date: 20150720
  Serious: Yes (Disabling)
  Sender: FDA-Public Use
  Company Number: NO-ASTRAZENECA-2014SE86492

PATIENT
  Age: 50 Year
  Sex: Male

DRUGS (11)
  1. SOBRIL [Concomitant]
     Active Substance: OXAZEPAM
  2. ISOPTIN [Concomitant]
     Active Substance: VERAPAMIL HYDROCHLORIDE
  3. ATENOLOL. [Suspect]
     Active Substance: ATENOLOL
     Indication: ATRIAL FIBRILLATION
     Route: 048
     Dates: start: 201208
  4. ATENOLOL. [Suspect]
     Active Substance: ATENOLOL
     Indication: ATRIAL FIBRILLATION
     Route: 048
  5. ATENOLOL. [Suspect]
     Active Substance: ATENOLOL
     Indication: ATRIAL FIBRILLATION
     Dosage: 150-200 MG DAILY
     Route: 048
  6. ALBYL-E [Concomitant]
     Active Substance: ASPIRIN\MAGNESIUM OXIDE
  7. ATENOLOL. [Suspect]
     Active Substance: ATENOLOL
     Indication: ATRIAL FIBRILLATION
     Route: 048
  8. TAMBOCOR [Suspect]
     Active Substance: FLECAINIDE ACETATE
     Dosage: 200 MG + 100 MG; UNK
     Route: 065
     Dates: end: 20120820
  9. CORDARONE [Suspect]
     Active Substance: AMIODARONE HYDROCHLORIDE
     Indication: ATRIAL FIBRILLATION
     Route: 065
     Dates: start: 200411, end: 2005
  10. DIGITOXIN [Concomitant]
     Active Substance: DIGITOXIN
  11. MAREVAN [Concomitant]
     Active Substance: WARFARIN SODIUM

REACTIONS (2)
  - Tic [Recovered/Resolved]
  - Tic [Recovering/Resolving]

NARRATIVE: CASE EVENT DATE: 200501
